FAERS Safety Report 25551560 (Version 4)
Quarter: 2025Q4

REPORT INFORMATION
  Report Type: Spontaneous
  Country: CO (occurrence: CO)
  Receive Date: 20250714
  Receipt Date: 20251002
  Transmission Date: 20260117
  Serious: No
  Sender: PFIZER
  Company Number: CO-PFIZER INC-PV202500082244

PATIENT
  Age: 14 Year
  Sex: Male

DRUGS (1)
  1. GENOTROPIN [Suspect]
     Active Substance: SOMATROPIN
     Indication: Short stature
     Dosage: 1.6 MG, DAILY
     Route: 058

REACTIONS (6)
  - Device information output issue [Recovered/Resolved]
  - Device leakage [Recovered/Resolved]
  - Device mechanical issue [Recovered/Resolved]
  - Device issue [Recovered/Resolved]
  - Product communication issue [Unknown]
  - Drug dose omission by device [Recovered/Resolved]
